FAERS Safety Report 10167873 (Version 2)
Quarter: 2014Q2

REPORT INFORMATION
  Report Type: Spontaneous
  Country: GB (occurrence: GB)
  Receive Date: 20140512
  Receipt Date: 20140603
  Transmission Date: 20141212
  Serious: Yes (Death, Hospitalization)
  Sender: FDA-Public Use
  Company Number: GB-BRISTOL-MYERS SQUIBB COMPANY-20692760

PATIENT
  Age: 77 Year
  Sex: Female
  Weight: 55.6 kg

DRUGS (8)
  1. ELIQUIS [Suspect]
     Indication: CEREBROVASCULAR ACCIDENT PROPHYLAXIS
  2. SIMVASTATIN [Concomitant]
  3. CITALOPRAM [Concomitant]
  4. OMEPRAZOLE [Concomitant]
  5. SOTALOL [Concomitant]
  6. MOVICOL [Concomitant]
     Dosage: 1DF=ONE SACHET
  7. CYCLIZINE [Concomitant]
  8. LACTULOSE [Concomitant]

REACTIONS (5)
  - Gastrointestinal haemorrhage [Fatal]
  - Nausea [Unknown]
  - Vomiting [Unknown]
  - Faecal vomiting [Unknown]
  - Haematemesis [Unknown]
